FAERS Safety Report 7727664-9 (Version None)
Quarter: 2011Q3

REPORT INFORMATION
  Report Type: 
  Country: None (occurrence: None)
  Receive Date: 20110902
  Receipt Date: 20110823
  Transmission Date: 20111222
  Serious: Yes (Other)
  Sender: FDA-Public Use
  Company Number: DE-GENENTECH-323678

PATIENT
  Sex: Male
  Weight: 83 kg

DRUGS (2)
  1. RITUXIMAB [Suspect]
     Indication: CHRONIC LYMPHOCYTIC LEUKAEMIA
     Dosage: LAST DOSE:22 AUG 2011, DOSE INTERRUPTED
     Route: 042
     Dates: start: 20110404
  2. BENDAMUSTINE [Suspect]
     Indication: CHRONIC LYMPHOCYTIC LEUKAEMIA
     Dosage: LAST DOSE:22 AUG 2011, DOSE INTERRUPTED
     Route: 042
     Dates: start: 20110404

REACTIONS (1)
  - HEPATIC ENZYME INCREASED [None]
